FAERS Safety Report 10028839 (Version 2)
Quarter: 2014Q1

REPORT INFORMATION
  Report Type: Report from Study
  Country: NL (occurrence: NL)
  Receive Date: 20140321
  Receipt Date: 20140321
  Transmission Date: 20141002
  Serious: Yes (Death, Other)
  Sender: FDA-Public Use
  Company Number: PHHY2013NL014661

PATIENT
  Sex: Male
  Weight: 70 kg

DRUGS (9)
  1. ZOMETA [Suspect]
     Indication: METASTASES TO BONE
     Dosage: 4 MG, EVERY 21 DAYS
     Route: 042
     Dates: start: 20121213
  2. ZOMETA [Suspect]
     Dosage: 4 MG, EVERY 21 DAYS
     Route: 042
     Dates: start: 20130107
  3. ZOMETA [Suspect]
     Dosage: 4 MG, EVERY 21 DAYS
     Route: 042
     Dates: start: 20130128, end: 20130212
  4. HALDOL [Concomitant]
     Dosage: 5 MG, BEFORE NIGHT (SINCE WEEK)
  5. OMEPRAZOLE [Concomitant]
     Dosage: 20 MG, CHRONIC USE
  6. TEMAZEPAM [Concomitant]
     Dosage: 10 MG, BEFORE NIGHT (CHRONIC USE)
  7. METOCLOPRAMIDE [Concomitant]
     Dosage: 10 MG, CHRONIC USE
  8. FENTANYL [Concomitant]
     Dosage: UNK UKN, CHRONIC USE
  9. VENTOLIN DISKUS [Concomitant]
     Dosage: UNK UKN, CHRONIC USE

REACTIONS (2)
  - General physical health deterioration [Fatal]
  - Terminal state [Unknown]
